FAERS Safety Report 8062183-4 (Version None)
Quarter: 2012Q1

REPORT INFORMATION
  Report Type: 
  Country: None (occurrence: None)
  Receive Date: 20120123
  Receipt Date: 20120116
  Transmission Date: 20120608
  Serious: Yes (Death)
  Sender: FDA-Public Use
  Company Number: US-ROXANE LABORATORIES, INC.-2012-EU-00352GD

PATIENT
  Age: 51 Year
  Sex: Male

DRUGS (2)
  1. LAMOTRIGINE [Suspect]
     Dosage: ROUTE: INGESTION PLUS UNKNOWN
  2. MORPHINE [Suspect]
     Dosage: ROUTE: INGESTION PLUS UNKNOWN

REACTIONS (1)
  - DRUG ABUSE [None]
